FAERS Safety Report 23221797 (Version 1)
Quarter: 2023Q4

REPORT INFORMATION
  Report Type: Spontaneous
  Country: US (occurrence: US)
  Receive Date: 20231123
  Receipt Date: 20231123
  Transmission Date: 20240110
  Serious: No
  Sender: FDA-Public Use
  Company Number: US-ELI_LILLY_AND_COMPANY-US202311013614

PATIENT
  Sex: Male

DRUGS (1)
  1. TALTZ [Suspect]
     Active Substance: IXEKIZUMAB
     Indication: Rheumatoid arthritis
     Dosage: 80 MG, OTHER, EVERY 4 WEEKS
     Route: 058

REACTIONS (2)
  - Dry mouth [Unknown]
  - Blood cholesterol increased [Unknown]
